FAERS Safety Report 8230079-0 (Version None)
Quarter: 2012Q1

REPORT INFORMATION
  Report Type: 
  Country: None (occurrence: None)
  Receive Date: 20120323
  Receipt Date: 20120320
  Transmission Date: 20120608
  Serious: No
  Sender: FDA-Public Use
  Company Number: US-PFIZER INC-2012072872

PATIENT
  Sex: Female
  Weight: 150 kg

DRUGS (10)
  1. FLUOXETINE [Concomitant]
     Dosage: 40 MG, 2X/DAY
  2. VENTOLIN HFA [Concomitant]
     Dosage: UNK
  3. LYRICA [Suspect]
     Dosage: 75 MG, 2X/DAY
     Route: 048
     Dates: start: 20120305
  4. CYCLOBENZAPRINE [Concomitant]
     Dosage: 10 MG, UNK
     Route: 048
  5. LEVOTHYROXINE [Concomitant]
     Indication: HYPOTHYROIDISM
     Dosage: UNK
  6. LISINOPRIL [Concomitant]
     Indication: HYPERTENSION
     Dosage: 20 MG, UNK
  7. LYRICA [Suspect]
     Indication: FIBROMYALGIA
     Dosage: 75 MG, 1X/DAY
     Route: 048
     Dates: start: 20120227, end: 20120305
  8. TRAZODONE [Concomitant]
     Dosage: 50 MG, AS NEEDED
  9. ATORVASTATIN [Concomitant]
     Dosage: 80 MG, 1X/DAY
  10. ADVAIR DISKUS 100/50 [Concomitant]
     Indication: CHRONIC OBSTRUCTIVE PULMONARY DISEASE
     Dosage: UNK

REACTIONS (4)
  - PAIN [None]
  - DRUG INEFFECTIVE [None]
  - FATIGUE [None]
  - SOMNOLENCE [None]
